FAERS Safety Report 4587036-5 (Version None)
Quarter: 2005Q1

REPORT INFORMATION
  Report Type: 
  Country: None (occurrence: None)
  Receive Date: 20050218
  Receipt Date: 20050211
  Transmission Date: 20050727
  Serious: Yes (Life-Threatening, Hospitalization, Disabling)
  Sender: FDA-Public Use
  Company Number: US-MERCK-0502USA01358

PATIENT
  Age: 59 Year
  Sex: Female

DRUGS (2)
  1. VIOXX [Suspect]
     Indication: ARTHRITIS
     Route: 048
  2. VIOXX [Suspect]
     Indication: PAIN MANAGEMENT
     Route: 048

REACTIONS (3)
  - ARTHRITIS INFECTIVE [None]
  - ARTHROPATHY [None]
  - GASTRIC DISORDER [None]
